FAERS Safety Report 7710299-1 (Version None)
Quarter: 2011Q3

REPORT INFORMATION
  Report Type: 
  Country: None (occurrence: None)
  Receive Date: 20110812
  Receipt Date: 20110730
  Transmission Date: 20111222
  Serious: Yes (Life-Threatening)
  Sender: FDA-Public Use
  Company Number: 003-054

PATIENT
  Age: 71 Year
  Sex: Female

DRUGS (12)
  1. LASIX [Concomitant]
  2. POTASSIUM CHLORIDE [Concomitant]
  3. ALTACE [Concomitant]
  4. SINEMET [Concomitant]
  5. PRADAXA [Concomitant]
  6. GLYBURIDE [Concomitant]
  7. SOLU-MEDROL [Concomitant]
  8. CROFAB [Suspect]
     Indication: SNAKE BITE
     Dates: start: 20110728, end: 20110728
  9. CROFAB [Suspect]
  10. PROTONIX [Concomitant]
  11. SYNTHROID [Concomitant]
  12. BENADRYL [Concomitant]

REACTIONS (13)
  - SCREAMING [None]
  - CARDIO-RESPIRATORY ARREST [None]
  - BLOOD GLUCOSE DECREASED [None]
  - HAEMOGLOBIN DECREASED [None]
  - STRIDOR [None]
  - PNEUMOMEDIASTINUM [None]
  - CYANOSIS [None]
  - LARYNGEAL OEDEMA [None]
  - ECCHYMOSIS [None]
  - ENDOTRACHEAL INTUBATION COMPLICATION [None]
  - COAGULOPATHY [None]
  - PAIN [None]
  - BLOOD BLISTER [None]
